FAERS Safety Report 18896017 (Version 2)
Quarter: 2021Q1

REPORT INFORMATION
  Report Type: Spontaneous
  Country: US (occurrence: US)
  Receive Date: 20210216
  Receipt Date: 20210216
  Transmission Date: 20210420
  Serious: No
  Sender: FDA-Public Use
  Company Number: US-ALLERGAN-2042825US

PATIENT
  Age: 69 Year
  Sex: Female

DRUGS (2)
  1. OXYTROL FOR WOMEN [Suspect]
     Active Substance: OXYBUTYNIN
     Indication: HYPERTONIC BLADDER
     Dosage: EVERY 4 DAYS
     Route: 062
  2. OXYTROL FOR WOMEN [Suspect]
     Active Substance: OXYBUTYNIN
     Indication: HYPERTONIC BLADDER
     Dosage: EVERY 4 DAYS
     Route: 062

REACTIONS (4)
  - Feeling abnormal [Unknown]
  - Dry eye [Unknown]
  - Dizziness [Unknown]
  - Tinnitus [Unknown]

NARRATIVE: CASE EVENT DATE: 202010
